FAERS Safety Report 14911781 (Version 1)
Quarter: 2018Q2

REPORT INFORMATION
  Report Type: Spontaneous
  Country: JP (occurrence: JP)
  Receive Date: 20180518
  Receipt Date: 20180518
  Transmission Date: 20180711
  Serious: Yes (Hospitalization, Other)
  Sender: FDA-Public Use
  Company Number: JP-ROCHE-2100999

PATIENT
  Age: 84 Year
  Sex: Female
  Weight: 60 kg

DRUGS (20)
  1. MAGNESIUM OXIDE. [Concomitant]
     Active Substance: MAGNESIUM OXIDE
     Dosage: DOSE INTERVAL UNCERTAINTY
     Route: 048
  2. EDIROL [Concomitant]
     Active Substance: ELDECALCITOL
     Route: 048
     Dates: start: 20160516
  3. BAYASPIRIN [Concomitant]
     Active Substance: ASPIRIN
     Route: 048
     Dates: start: 20160516
  4. PREDNISOLONE. [Concomitant]
     Active Substance: PREDNISOLONE
     Route: 048
     Dates: start: 20160516
  5. METHOTREXATE. [Concomitant]
     Active Substance: METHOTREXATE
     Route: 048
     Dates: start: 20161104
  6. FOLIAMIN [Concomitant]
     Active Substance: FOLIC ACID
     Dosage: DOSE INTERVAL UNCERTAINTY
     Route: 048
  7. LOXOPROFEN NA [Concomitant]
     Active Substance: LOXOPROFEN SODIUM
     Dosage: DOSAGE IS UNCERTAIN.
     Route: 003
  8. ACTEMRA [Suspect]
     Active Substance: TOCILIZUMAB
     Indication: TEMPORAL ARTERITIS
     Dosage: DOSAGE IS UNCERTAIN.
     Route: 058
     Dates: start: 20170606, end: 20180208
  9. FORTEO [Concomitant]
     Active Substance: TERIPARATIDE
     Dosage: DOSAGE IS UNCERTAIN.
     Route: 058
  10. LOXOPROFEN NA [Concomitant]
     Active Substance: LOXOPROFEN SODIUM
     Dosage: DOSE INTERVAL UNCERTAINTY
     Route: 061
  11. METHOTREXATE. [Concomitant]
     Active Substance: METHOTREXATE
     Dosage: DOSE INTERVAL UNCERTAINTY
     Route: 048
  12. ALESION [Concomitant]
     Active Substance: EPINASTINE HYDROCHLORIDE
     Dosage: UNIT DOSE: 1 [DRP]
     Route: 047
  13. ACTEMRA [Suspect]
     Active Substance: TOCILIZUMAB
     Indication: RHEUMATOID ARTHRITIS
     Route: 041
  14. AZILVA [Concomitant]
     Active Substance: AZILSARTAN KAMEDOXOMIL
     Dosage: DOSE INTERVAL UNCERTAINTY
     Route: 048
  15. SENNOSIDE [Concomitant]
     Active Substance: SENNOSIDES
     Dosage: DOSE INTERVAL UNCERTAINTY
     Route: 048
  16. LUNESTA [Concomitant]
     Active Substance: ESZOPICLONE
     Dosage: DOSE INTERVAL UNCERTAINTY
     Route: 048
  17. NEXIUM [Concomitant]
     Active Substance: ESOMEPRAZOLE MAGNESIUM
     Route: 048
     Dates: start: 20160516
  18. CALONAL [Concomitant]
     Active Substance: ACETAMINOPHEN
     Dosage: DOSE INTERVAL UNCERTAINTY
     Route: 048
  19. TRAMCET [Concomitant]
     Active Substance: ACETAMINOPHEN\TRAMADOL
     Dosage: DOSE INTERVAL UNCERTAINTY
     Route: 048
  20. CATALIN-K [Concomitant]
     Dosage: DOSAGE IS UNCERTAIN.
     Route: 047

REACTIONS (6)
  - Diverticulitis [Recovered/Resolved]
  - Abscess [Unknown]
  - Diverticular perforation [Recovered/Resolved]
  - Compression fracture [Unknown]
  - Peritonitis [Unknown]
  - Ovarian mass [Unknown]

NARRATIVE: CASE EVENT DATE: 20180208
